FAERS Safety Report 6859671-2 (Version None)
Quarter: 2010Q3

REPORT INFORMATION
  Report Type: 
  Country: None (occurrence: None)
  Receive Date: 20100720
  Receipt Date: 20100716
  Transmission Date: 20110219
  Serious: Yes (Other)
  Sender: FDA-Public Use
  Company Number: US-BRISTOL-MYERS SQUIBB COMPANY-15196306

PATIENT
  Age: 71 Year
  Sex: Female

DRUGS (1)
  1. ERBITUX [Suspect]
     Indication: COLORECTAL CANCER STAGE IV

REACTIONS (4)
  - AMNESIA [None]
  - BLOOD MAGNESIUM DECREASED [None]
  - NAIL DISORDER [None]
  - SKIN FISSURES [None]
